FAERS Safety Report 9085117 (Version 3)
Quarter: 2015Q3

REPORT INFORMATION
  Report Type: Spontaneous
  Country: GB (occurrence: GB)
  Receive Date: 20130218
  Receipt Date: 20150708
  Transmission Date: 20151125
  Serious: Yes (Hospitalization, Other)
  Sender: FDA-Public Use
  Company Number: PHFR2013GB001184

PATIENT
  Age: 45 Year
  Sex: Male

DRUGS (2)
  1. CLOZARIL [Suspect]
     Active Substance: CLOZAPINE
     Indication: SCHIZOPHRENIA
     Dosage: UNK
     Route: 048
     Dates: start: 20010701
  2. CLOZARIL [Suspect]
     Active Substance: CLOZAPINE
     Dosage: 250 MG, QD
     Route: 048
     Dates: start: 2007

REACTIONS (9)
  - Depression [Recovered/Resolved]
  - Confusional state [Unknown]
  - Delirium [Recovered/Resolved]
  - Sepsis [Recovered/Resolved]
  - Thinking abnormal [Unknown]
  - Muscle rigidity [Unknown]
  - Mental impairment [Recovered/Resolved]
  - Blood creatine phosphokinase increased [Unknown]
  - Schizophrenia [Unknown]

NARRATIVE: CASE EVENT DATE: 20130211
